FAERS Safety Report 25987807 (Version 1)
Quarter: 2025Q4

REPORT INFORMATION
  Report Type: Spontaneous
  Country: US (occurrence: US)
  Receive Date: 20251103
  Receipt Date: 20251103
  Transmission Date: 20260117
  Serious: No
  Sender: CHATTEM
  Company Number: US-OPELLA-2025OHG029281

PATIENT
  Age: 70 Year
  Sex: Female

DRUGS (12)
  1. ALLEGRA [Suspect]
     Active Substance: FEXOFENADINE HYDROCHLORIDE
     Indication: Urticaria chronic
     Dates: start: 2025
  2. XYZAL [Suspect]
     Active Substance: LEVOCETIRIZINE DIHYDROCHLORIDE
     Indication: Urticaria chronic
     Dates: start: 2025
  3. CLARITIN [Concomitant]
     Active Substance: LORATADINE
     Indication: Urticaria
     Dosage: 4 TAB DAILY
     Route: 048
     Dates: start: 20250401
  4. LEVOTHYROXINE [Concomitant]
     Active Substance: LEVOTHYROXINE
     Indication: Hypothyroidism
     Dosage: 1 TAB PO DAILY
     Route: 048
  5. Triamcinolone topical cream [Concomitant]
     Indication: Urticaria chronic
     Dosage: BID*2 WEEKS
     Route: 061
  6. PREDNISONE [Concomitant]
     Active Substance: PREDNISONE
     Indication: Urticaria chronic
     Dosage: 1 TAB PO DAILY*6 DAYS
     Route: 048
     Dates: start: 20250903
  7. FAMOTIDINE [Concomitant]
     Active Substance: FAMOTIDINE
     Indication: Gastrooesophageal reflux disease
     Dosage: 1 TAB PO BID
     Route: 048
     Dates: start: 20250702, end: 20250723
  8. FAMOTIDINE [Concomitant]
     Active Substance: FAMOTIDINE
     Indication: Urticaria
  9. LAMOTRIGINE [Concomitant]
     Active Substance: LAMOTRIGINE
     Indication: Product used for unknown indication
  10. BENADRYL [Concomitant]
     Active Substance: DIPHENHYDRAMINE HYDROCHLORIDE
     Indication: Urticaria
     Dosage: AT NIGHT
     Dates: start: 202504
  11. ZYRTEC [Concomitant]
     Active Substance: CETIRIZINE HYDROCHLORIDE
     Indication: Urticaria
     Dates: start: 20250609
  12. DUPIXENT [Concomitant]
     Active Substance: DUPILUMAB
     Indication: Urticaria chronic
     Dosage: LOCATION OF ADMINISTRATION-LEFT ANT THIGH?ONLY INITIAL DOSE ADMINISTERED
     Route: 058
     Dates: start: 20250820, end: 20250820

REACTIONS (2)
  - Drug ineffective [Unknown]
  - No adverse event [Unknown]
